FAERS Safety Report 21239965 (Version 2)
Quarter: 2022Q3

REPORT INFORMATION
  Report Type: Report from Study
  Country: US (occurrence: US)
  Receive Date: 20220822
  Receipt Date: 20220908
  Transmission Date: 20221026
  Serious: Yes (Hospitalization, Other)
  Sender: FDA-Public Use
  Company Number: US-TAKEDA-2022TUS056466

PATIENT
  Age: 77 Year
  Sex: Female
  Weight: 71 kg

DRUGS (32)
  1. HUMAN IMMUNOGLOBULIN G [Suspect]
     Active Substance: HUMAN IMMUNOGLOBULIN G
     Indication: Immunodeficiency common variable
     Dosage: UNK
     Route: 065
  2. HUMAN IMMUNOGLOBULIN G [Suspect]
     Active Substance: HUMAN IMMUNOGLOBULIN G
     Dosage: 7 GRAM, 1/WEEK
     Route: 058
  3. ZYRTECNO [Concomitant]
  4. FUROSEMIDE [Concomitant]
     Active Substance: FUROSEMIDE
  5. ALBUTEROL [Concomitant]
     Active Substance: ALBUTEROL
  6. METOPROLOL [Concomitant]
     Active Substance: METOPROLOL
  7. MAGNESIUM OXIDE [Concomitant]
     Active Substance: MAGNESIUM OXIDE
  8. BENZONATATE [Concomitant]
     Active Substance: BENZONATATE
  9. ROPINIROLE [Concomitant]
     Active Substance: ROPINIROLE
  10. VITAMIN C [Concomitant]
     Active Substance: ASCORBIC ACID
  11. LANSOPRAZOLE [Concomitant]
     Active Substance: LANSOPRAZOLE
  12. PRIMIDONE [Concomitant]
     Active Substance: PRIMIDONE
  13. TYLENOL [Concomitant]
     Active Substance: ACETAMINOPHEN
  14. RESTASIS [Concomitant]
     Active Substance: CYCLOSPORINE
  15. ATORVASTATIN CALCIUM [Concomitant]
     Active Substance: ATORVASTATIN CALCIUM
  16. CYANOCOBALAMIN [Concomitant]
     Active Substance: CYANOCOBALAMIN
  17. PULMICORT TURBUHALER [Concomitant]
     Active Substance: BUDESONIDE
  18. GABAPENTIN [Concomitant]
     Active Substance: GABAPENTIN
  19. ASPIRIN [Concomitant]
     Active Substance: ASPIRIN
  20. PREDNISONE [Concomitant]
     Active Substance: PREDNISONE
  21. ROPINIROLE [Concomitant]
     Active Substance: ROPINIROLE
  22. SULFACETAMIDE SODIUM [Concomitant]
     Active Substance: SULFACETAMIDE SODIUM
  23. POTASSIUM CHLORIDE [Concomitant]
     Active Substance: POTASSIUM CHLORIDE
  24. BACTRIM [Concomitant]
     Active Substance: SULFAMETHOXAZOLE\TRIMETHOPRIM
  25. MONTELUKAST [Concomitant]
     Active Substance: MONTELUKAST SODIUM
  26. LEFLUNOMIDE [Concomitant]
     Active Substance: LEFLUNOMIDE
  27. VITAMIN D3 [Concomitant]
     Active Substance: CHOLECALCIFEROL
  28. BACLOFEN [Concomitant]
     Active Substance: BACLOFEN
  29. PERFOROMIST [Concomitant]
     Active Substance: FORMOTEROL FUMARATE DIHYDRATE
  30. PROBIOTICS NOS [Concomitant]
     Active Substance: PROBIOTICS NOS
  31. SPIRONOLACTONE [Concomitant]
     Active Substance: SPIRONOLACTONE
  32. PROLIA [Concomitant]
     Active Substance: DENOSUMAB

REACTIONS (6)
  - Chills [Unknown]
  - Oxygen saturation abnormal [Unknown]
  - Myocardial infarction [Unknown]
  - Atrial fibrillation [None]
  - Asthenia [Unknown]
  - Fatigue [Unknown]

NARRATIVE: CASE EVENT DATE: 20220827
